FAERS Safety Report 9212893 (Version 1)
Quarter: 2013Q2

REPORT INFORMATION
  Report Type: Spontaneous
  Country: US (occurrence: US)
  Receive Date: 20130405
  Receipt Date: 20130405
  Transmission Date: 20140414
  Serious: No
  Sender: FDA-Public Use
  Company Number: US-009507513-1304USA002242

PATIENT
  Age: 62 Year
  Sex: Male
  Weight: 111.11 kg

DRUGS (8)
  1. VICTRELIS [Suspect]
     Dosage: 200 MG, TID, EVERY 7-9 HOURS
     Route: 048
  2. REBETOL [Suspect]
     Dosage: 200 MG, UNK
  3. PEGASYS [Suspect]
  4. LASIX (FUROSEMIDE SODIUM) [Concomitant]
     Dosage: 20 MG, UNK
  5. CITALOPRAM [Concomitant]
     Dosage: 10 MG, UNK
  6. SPIRONOLACT [Concomitant]
     Dosage: 100 MG, UNK
  7. TRAZODONE HYDROCHLORIDE [Concomitant]
     Dosage: 150 MG, UNK
  8. VITAMINS (UNSPECIFIED) [Concomitant]

REACTIONS (1)
  - Red blood cell count decreased [Unknown]
